FAERS Safety Report 19601991 (Version 2)
Quarter: 2021Q3

REPORT INFORMATION
  Report Type: Spontaneous
  Country: US (occurrence: US)
  Receive Date: 20210723
  Receipt Date: 20210813
  Transmission Date: 20211014
  Serious: No
  Sender: FDA-Public Use
  Company Number: US-VERTEX PHARMACEUTICALS-2021-010898

PATIENT
  Age: 10 Year
  Sex: Male
  Weight: 30 kg

DRUGS (2)
  1. TRIKAFTA [Suspect]
     Active Substance: ELEXACAFTOR\IVACAFTOR\TEZACAFTOR
     Dosage: 1 ORANGE TAB(50MG ELEXA/ 25MG TEZA/ 37.5MG IVA)AM 1/2 BLUE TAB (75MG IVA)PM
     Route: 048
     Dates: start: 20210721
  2. TRIKAFTA [Suspect]
     Active Substance: ELEXACAFTOR\IVACAFTOR\TEZACAFTOR
     Indication: CYSTIC FIBROSIS
     Dosage: ADULT DOSE
     Route: 048
     Dates: start: 20210705, end: 202107

REACTIONS (2)
  - Rash pruritic [Recovered/Resolved]
  - Rash papular [Recovered/Resolved]

NARRATIVE: CASE EVENT DATE: 20210712
